FAERS Safety Report 8517873-3 (Version None)
Quarter: 2012Q3

REPORT INFORMATION
  Report Type: 
  Country: None (occurrence: None)
  Receive Date: 20120718
  Receipt Date: 20110624
  Transmission Date: 20120928
  Serious: No
  Sender: FDA-Public Use
  Company Number: US-BRISTOL-MYERS SQUIBB COMPANY-15854664

PATIENT
  Age: 77 Year
  Sex: Female
  Weight: 67 kg

DRUGS (1)
  1. COUMADIN [Suspect]
     Dosage: DURATION: ABOUT A YEAR TWO OF THE 2MG ON TUESDAY AND THURSDAY.

REACTIONS (1)
  - INTERNATIONAL NORMALISED RATIO DECREASED [None]
